FAERS Safety Report 6607586-7 (Version None)
Quarter: 2010Q1

REPORT INFORMATION
  Report Type: 
  Country: None (occurrence: None)
  Receive Date: 20100129
  Receipt Date: 20100122
  Transmission Date: 20100710
  Serious: Yes (Other)
  Sender: FDA-Public Use
  Company Number: JHP201000033

PATIENT
  Sex: Female

DRUGS (1)
  1. APLISOL [Suspect]
     Indication: TUBERCULOSIS TEST
     Dosage: 0.1 ML, SINGLE, INTRADERMAL
     Route: 023
     Dates: start: 20091201, end: 20091201

REACTIONS (9)
  - BLISTER [None]
  - DRUG ADMINISTRATION ERROR [None]
  - ERYTHEMA [None]
  - INJECTION SITE PAIN [None]
  - LOCAL SWELLING [None]
  - LOCALISED INFECTION [None]
  - PURULENT DISCHARGE [None]
  - SCAR [None]
  - WRONG TECHNIQUE IN DRUG USAGE PROCESS [None]
